FAERS Safety Report 6426484-5 (Version None)
Quarter: 2009Q4

REPORT INFORMATION
  Report Type: 
  Country: None (occurrence: None)
  Receive Date: 20091030
  Receipt Date: 20091020
  Transmission Date: 20100525
  Serious: Yes (Hospitalization, Disabling)
  Sender: FDA-Public Use
  Company Number: OSCN-NO-0812L-0644

PATIENT
  Age: 50 Year
  Sex: Male

DRUGS (7)
  1. OMNISCAN [Suspect]
     Indication: DRUG USE FOR UNKNOWN INDICATION
     Dosage: SINGLE DOSE, I.V.
     Route: 042
  2. STEROIDS [Suspect]
  3. MAGNEVIST [Concomitant]
  4. MYCOPHENOLATE MOFETIL [Concomitant]
  5. TACROLIMUS [Concomitant]
  6. HIGH-DOSE STEROIDS [Concomitant]
  7. AZATHIOPRINE [Concomitant]

REACTIONS (10)
  - BRONCHOPULMONARY ASPERGILLOSIS [None]
  - CEREBRAL ASPERGILLOSIS [None]
  - COMPLICATIONS OF TRANSPLANTED KIDNEY [None]
  - HAEMODIALYSIS [None]
  - KIDNEY TRANSPLANT REJECTION [None]
  - NEPHROGENIC SYSTEMIC FIBROSIS [None]
  - PNEUMONIA CYTOMEGALOVIRAL [None]
  - RENAL TRANSPLANT [None]
  - RENAL VEIN THROMBOSIS [None]
  - SEPSIS [None]
